FAERS Safety Report 15480987 (Version 1)
Quarter: 2018Q4

REPORT INFORMATION
  Report Type: Spontaneous
  Country: IL (occurrence: IL)
  Receive Date: 20181010
  Receipt Date: 20181010
  Transmission Date: 20190205
  Serious: Yes (Hospitalization)
  Sender: FDA-Public Use
  Company Number: IL-ROCHE-2195403

PATIENT
  Sex: Male

DRUGS (4)
  1. OPTALGIN [Concomitant]
     Active Substance: METAMIZOLE
     Indication: ADENOCARCINOMA OF COLON
     Dosage: 500 MG/1 ML 1000MG
     Route: 048
  2. XELODA [Suspect]
     Active Substance: CAPECITABINE
     Indication: ADENOCARCINOMA OF COLON
     Route: 048
     Dates: start: 201711
  3. IMODIUM [Concomitant]
     Active Substance: LOPERAMIDE HYDROCHLORIDE
     Indication: ADENOCARCINOMA OF COLON
     Route: 048
  4. LOSEC [Concomitant]
     Active Substance: OMEPRAZOLE
     Indication: ADENOCARCINOMA OF COLON
     Route: 048

REACTIONS (5)
  - Vomiting [Recovered/Resolved]
  - Diarrhoea [Recovered/Resolved]
  - Small intestinal obstruction [Recovered/Resolved]
  - Cardiac fibrillation [Recovered/Resolved]
  - Colitis [Recovered/Resolved]
